FAERS Safety Report 5880849-9 (Version None)
Quarter: 2008Q3

REPORT INFORMATION
  Report Type: 
  Country: None (occurrence: None)
  Receive Date: 20080912
  Receipt Date: 20080613
  Transmission Date: 20090109
  Serious: No
  Sender: FDA-Public Use
  Company Number: US-ABBOTT-08P-163-0457398-00

PATIENT
  Sex: Female
  Weight: 69.008 kg

DRUGS (11)
  1. HUMIRA [Suspect]
     Indication: RHEUMATOID ARTHRITIS
     Route: 058
     Dates: start: 20080522
  2. CETIRIZINE HYDROCHLORIDE [Concomitant]
     Indication: SEASONAL ALLERGY
     Route: 048
     Dates: start: 20080201
  3. PREDNISONE TAB [Concomitant]
     Indication: RHEUMATOID ARTHRITIS
     Route: 048
     Dates: start: 19930101
  4. AZULFADINE [Concomitant]
     Indication: RHEUMATOID ARTHRITIS
     Dosage: 500 MILLIGRAMS 3 TABS TWICE DAILY
     Route: 048
     Dates: start: 20050101
  5. HYDROXYCHLOROQUINE [Concomitant]
     Indication: RHEUMATOID ARTHRITIS
     Route: 048
     Dates: start: 20040101
  6. FOLIC ACID [Concomitant]
     Indication: VITAMIN SUPPLEMENTATION
     Route: 048
  7. LEFLUNOMIDE [Concomitant]
     Indication: RHEUMATOID ARTHRITIS
     Route: 048
     Dates: start: 20080301
  8. OMEPRAZOLE MAGNESIUM [Concomitant]
     Indication: GASTROOESOPHAGEAL REFLUX DISEASE
     Route: 048
     Dates: start: 20071201
  9. CALTRATE PLUS VITAMIN D [Concomitant]
     Indication: MINERAL SUPPLEMENTATION
     Dosage: 600 MILLIGRAMS 2 TABS TWICE DAILY
     Route: 048
     Dates: start: 19930101
  10. OCUCIT [Concomitant]
     Indication: MEDICAL DIET
     Route: 048
     Dates: start: 20040101
  11. MELOXICAM [Concomitant]
     Indication: RHEUMATOID ARTHRITIS
     Route: 048
     Dates: start: 20050101

REACTIONS (4)
  - RASH [None]
  - RASH MACULAR [None]
  - RASH PAPULAR [None]
  - RASH PRURITIC [None]
